FAERS Safety Report 14717891 (Version 5)
Quarter: 2019Q2

REPORT INFORMATION
  Report Type: Spontaneous
  Country: US (occurrence: US)
  Receive Date: 20180404
  Receipt Date: 20190617
  Transmission Date: 20190711
  Serious: No
  Sender: FDA-Public Use
  Company Number: US-SA-2018SA047773

PATIENT
  Sex: Male

DRUGS (10)
  1. PREDNISONE. [Suspect]
     Active Substance: PREDNISONE
     Dosage: UNK UNK,UNK
     Route: 065
  2. DEXAMETHASONE. [Concomitant]
     Active Substance: DEXAMETHASONE
  3. FOSAMAX [Concomitant]
     Active Substance: ALENDRONATE SODIUM
  4. ACICLOVIR [Concomitant]
     Active Substance: ACYCLOVIR
  5. METHOTREXATE. [Concomitant]
     Active Substance: METHOTREXATE
  6. SINGULAIR [Concomitant]
     Active Substance: MONTELUKAST SODIUM
  7. DUPIXENT [Suspect]
     Active Substance: DUPILUMAB
     Indication: DERMATITIS ATOPIC
     Dosage: 300 MG,QOW
     Route: 058
     Dates: start: 20171214
  8. BACTRIM [Concomitant]
     Active Substance: SULFAMETHOXAZOLE\TRIMETHOPRIM
  9. DAPSONE. [Concomitant]
     Active Substance: DAPSONE
  10. VELCADE [Concomitant]
     Active Substance: BORTEZOMIB

REACTIONS (3)
  - Dermatitis [Not Recovered/Not Resolved]
  - Rash [Not Recovered/Not Resolved]
  - Product dose omission [Unknown]

NARRATIVE: CASE EVENT DATE: 2018
